FAERS Safety Report 9619799 (Version 1)
Quarter: 2013Q4

REPORT INFORMATION
  Report Type: Spontaneous
  Country: US (occurrence: US)
  Receive Date: 20131014
  Receipt Date: 20131014
  Transmission Date: 20140711
  Serious: Yes (Hospitalization, Other)
  Sender: FDA-Public Use
  Company Number: US-ROXANE LABORATORIES, INC.-2013-RO-01662RO

PATIENT
  Age: 60 Year
  Sex: Male

DRUGS (2)
  1. METHADONE [Suspect]
     Indication: DRUG DEPENDENCE
     Dosage: HIGH DAILY DOSE
  2. LEVOTHYROXINE [Suspect]
     Indication: HYPOTHYROIDISM

REACTIONS (6)
  - Syncope [Recovered/Resolved]
  - Electrocardiogram QT prolonged [Recovered/Resolved]
  - Torsade de pointes [Recovered/Resolved]
  - Bradycardia [Unknown]
  - Pollakiuria [Unknown]
  - Urinary hesitation [Unknown]
